FAERS Safety Report 10076590 (Version 1)
Quarter: 2014Q2

REPORT INFORMATION
  Report Type: Spontaneous
  Country: US (occurrence: None)
  Receive Date: 20140411
  Receipt Date: 20140411
  Transmission Date: 20141212
  Serious: Yes (Life-Threatening, Hospitalization, Disabling, Other)
  Sender: FDA-Public Use
  Company Number: None

PATIENT
  Age: 57 Year
  Sex: Male
  Weight: 86.18 kg

DRUGS (1)
  1. INVOKANA [Suspect]
     Indication: DIABETES MELLITUS
     Dosage: 1 PILL?ONCE DAILY?TAKEN BY MOUTH
     Route: 048
     Dates: start: 201310, end: 201402

REACTIONS (5)
  - Pancreatitis [None]
  - Kidney infection [None]
  - Hepatic infection [None]
  - Gastrointestinal infection [None]
  - Product label issue [None]
